FAERS Safety Report 4854923-X (Version None)
Quarter: 2005Q4

REPORT INFORMATION
  Report Type: 
  Country: None (occurrence: None)
  Receive Date: 20051208
  Receipt Date: 20051125
  Transmission Date: 20060501
  Serious: Yes (Other)
  Sender: FDA-Public Use
  Company Number: 200510603BYL

PATIENT
  Age: 12 Month
  Sex: Male

DRUGS (1)
  1. GAMIMUNE N 5% [Suspect]
     Indication: KAWASAKI'S DISEASE
     Dosage: INTRAVENOUS
     Route: 042
     Dates: start: 20051123

REACTIONS (3)
  - BLOOD PRESSURE SYSTOLIC INCREASED [None]
  - EPISTAXIS [None]
  - INFUSION RELATED REACTION [None]
